APPROVED DRUG PRODUCT: VELPHORO
Active Ingredient: FERRIC OXYHYDROXIDE
Strength: EQ 500MG IRON
Dosage Form/Route: TABLET, CHEWABLE;ORAL
Application: N205109 | Product #001
Applicant: VIFOR FRESENIUS MEDICAL CARE RENAL PHARMA FRANCE
Approved: Nov 27, 2013 | RLD: Yes | RS: Yes | Type: RX

PATENTS:
Patent 9561251 | Expires: Jan 23, 2030
Patent 10695367 | Expires: Nov 13, 2028
Patent 11013762 | Expires: Nov 13, 2028
Patent 10624855 | Expires: Nov 26, 2034
Patent 10933090 | Expires: Nov 13, 2028
Patent 10925897 | Expires: Nov 13, 2028
Patent 11234938 | Expires: Nov 26, 2034
Patent 10682376 | Expires: Nov 13, 2028
Patent 10925896 | Expires: Nov 13, 2028
Patent 11446252 | Expires: Nov 26, 2034
Patent 11013761 | Expires: Nov 13, 2028
Patent 9561251*PED | Expires: Jul 23, 2030
Patent 11013762*PED | Expires: May 13, 2029
Patent 11446252*PED | Expires: May 26, 2035
Patent 10925896*PED | Expires: May 13, 2029
Patent 10925897*PED | Expires: May 13, 2029
Patent 10933090*PED | Expires: May 13, 2029
Patent 10682376*PED | Expires: May 13, 2029
Patent 11013761*PED | Expires: May 13, 2029
Patent 10624855*PED | Expires: May 26, 2035
Patent 11234938*PED | Expires: May 26, 2035
Patent 10695367*PED | Expires: May 13, 2029

EXCLUSIVITY:
Code: NPP | Date: Jul 1, 2027
Code: PED | Date: Jan 1, 2028